FAERS Safety Report 4497201-3 (Version None)
Quarter: 2004Q4

REPORT INFORMATION
  Report Type: 
  Country: None (occurrence: None)
  Receive Date: 20041110
  Receipt Date: 20041104
  Transmission Date: 20050328
  Serious: Yes (Hospitalization)
  Sender: FDA-Public Use
  Company Number: PHNU2004DE03743

PATIENT
  Age: 33 Year
  Sex: Female
  Weight: 61 kg

DRUGS (1)
  1. SANDIMMUNE [Suspect]
     Indication: RENAL TRANSPLANT
     Dosage: 175 MG DAILY
     Route: 048
     Dates: start: 20021105, end: 20021121

REACTIONS (5)
  - BRAIN OEDEMA [None]
  - HEADACHE [None]
  - HYPERTENSIVE CRISIS [None]
  - MALAISE [None]
  - REGURGITATION OF FOOD [None]
